FAERS Safety Report 4988569-X (Version None)
Quarter: 2006Q2

REPORT INFORMATION
  Report Type: 
  Country: None (occurrence: None)
  Receive Date: 20060426
  Receipt Date: 20060418
  Transmission Date: 20061013
  Serious: Yes (Hospitalization)
  Sender: FDA-Public Use
  Company Number: 13908

PATIENT
  Age: 39 Year
  Sex: Male
  Weight: 77 kg

DRUGS (5)
  1. BLEOMYCIN [Suspect]
     Indication: TESTIS CANCER
     Dosage: 3000 IU PER_CYCLE IV
     Route: 042
     Dates: start: 20060308
  2. CISPLATIN [Suspect]
     Indication: TESTIS CANCER
     Dosage: 96 MG PER_CYCLE IV
     Route: 042
     Dates: start: 20060306
  3. ETOPOSIDE [Suspect]
     Indication: TESTIS CANCER
     Dosage: 230 MG PER_CYCLE IV
     Route: 042
     Dates: start: 20060306
  4. DEXAMETHASONE [Concomitant]
  5. DOMPERIDONE [Concomitant]

REACTIONS (3)
  - NEUTROPENIC SEPSIS [None]
  - PHARYNGOLARYNGEAL PAIN [None]
  - PYREXIA [None]
